FAERS Safety Report 9116952 (Version 4)
Quarter: 2013Q4

REPORT INFORMATION
  Report Type: Spontaneous
  Country: US (occurrence: US)
  Receive Date: 20130225
  Receipt Date: 20131226
  Transmission Date: 20140711
  Serious: No
  Sender: FDA-Public Use
  Company Number: US-PFIZER INC-2013067005

PATIENT
  Age: 50 Year
  Sex: Female
  Weight: 86.17 kg

DRUGS (13)
  1. PRISTIQ [Suspect]
     Indication: ANXIETY
     Dosage: 50 MG, 1X/DAY
     Route: 048
  2. PRISTIQ [Suspect]
     Dosage: 100 MG, DAILY
     Route: 048
  3. TEMAZEPAM [Concomitant]
     Indication: SLEEP DISORDER
     Dosage: UNK
  4. DIAZEPAM [Concomitant]
     Indication: SLEEP DISORDER
     Dosage: UNK
  5. DILANTIN [Concomitant]
     Indication: CONVULSION
     Dosage: 3 DF, 1X/DAY
     Route: 048
  6. DILANTIN [Concomitant]
     Dosage: 100 MG, 3X/DAY
  7. NAPROSYN [Concomitant]
     Dosage: 500 MG, 2X/DAY
     Route: 048
  8. ZOCOR [Concomitant]
     Dosage: 40 MG, 1X/DAY (QHS)
     Route: 048
  9. RESTORIL [Concomitant]
     Indication: INSOMNIA
     Dosage: 15 MG, AS NEEDED (AT BEDTIME PRN)
     Route: 048
  10. SEROQUEL [Concomitant]
     Dosage: 100 MG, 1X/DAY (ONE PO HS)
     Route: 048
  11. ULTRAM [Concomitant]
     Indication: PAIN
     Dosage: 50 MG, AS NEEDED (ONE TID PRN)
  12. VALTREX [Concomitant]
     Dosage: 2 G, AS NEEDED (1GM TABLET 2 BID X 1DAY PRN)
  13. VENTOLIN HFA [Concomitant]
     Dosage: UNK, AS NEEDED (90MCG/1ACTUATION ORAL INHALER 2 PUFFS PO QID AND PRN)
     Route: 055

REACTIONS (5)
  - Amnesia [Not Recovered/Not Resolved]
  - Stress [Not Recovered/Not Resolved]
  - Crying [Not Recovered/Not Resolved]
  - Drug ineffective [Unknown]
  - Osteopenia [Unknown]
